FAERS Safety Report 12812940 (Version 1)
Quarter: 2016Q4

REPORT INFORMATION
  Report Type: Spontaneous
  Country: US (occurrence: US)
  Receive Date: 20161005
  Receipt Date: 20161005
  Transmission Date: 20170207
  Serious: No
  Sender: FDA-Public Use
  Company Number: US-AMGEN-USASP2016059971

PATIENT
  Age: 78 Year
  Sex: Female

DRUGS (1)
  1. PROLIA [Suspect]
     Active Substance: DENOSUMAB
     Indication: PRODUCT USED FOR UNKNOWN INDICATION
     Dosage: UNK
     Route: 065
     Dates: start: 201511

REACTIONS (11)
  - Malaise [Unknown]
  - Pruritus generalised [Unknown]
  - Back pain [Unknown]
  - Muscle spasms [Unknown]
  - Erythema [Unknown]
  - Off label use [Unknown]
  - Formication [Unknown]
  - Rash generalised [Unknown]
  - Paraesthesia [Unknown]
  - Condition aggravated [Unknown]
  - Skin mass [Unknown]

NARRATIVE: CASE EVENT DATE: 201602
